FAERS Safety Report 6815019 (Version 3)
Quarter: 2013Q1

REPORT INFORMATION
  Report Type: Spontaneous
  Country: CH (occurrence: CH)
  Receive Date: 20081118
  Receipt Date: 20130312
  Transmission Date: 20140127
  Serious: Yes (Other)
  Sender: FDA-Public Use
  Company Number: PHHY2008CH27689

PATIENT
  Age: 48 Year
  Sex: Male
  Weight: 69.84 kg

DRUGS (4)
  1. ZOMETA [Suspect]
     Indication: RENAL CANCER
     Dosage: 4 MG/5 ML
     Route: 041
     Dates: start: 20060101, end: 20080401
  2. INTERFERON ALFA [Suspect]
     Indication: RENAL CANCER
     Dates: start: 200701
  3. NEXAVAR [Suspect]
     Indication: RENAL CELL CARCINOMA
     Dosage: 400 MG, DAILY
     Route: 048
     Dates: start: 20070101
  4. SUTENT [Suspect]
     Indication: RENAL CELL CARCINOMA
     Dosage: UNK UKN, UNK
     Dates: start: 20071101

REACTIONS (5)
  - Osteonecrosis of jaw [Not Recovered/Not Resolved]
  - Osteomyelitis [Not Recovered/Not Resolved]
  - Impaired healing [Not Recovered/Not Resolved]
  - Infection [Not Recovered/Not Resolved]
  - Condition aggravated [Not Recovered/Not Resolved]
